FAERS Safety Report 6725394-3 (Version None)
Quarter: 2010Q2

REPORT INFORMATION
  Report Type: 
  Country: None (occurrence: None)
  Receive Date: 20100514
  Receipt Date: 20100514
  Transmission Date: 20101027
  Serious: Yes (Hospitalization)
  Sender: FDA-Public Use
  Company Number: None

PATIENT
  Age: 9 Year
  Sex: Male
  Weight: 30.8446 kg

DRUGS (1)
  1. CHILDREN'S MOTRIN [Suspect]
     Indication: OROPHARYNGEAL PAIN
     Dosage: 12.5ML EVERY 6 HRS. PO 1 X DOSE
     Route: 048

REACTIONS (10)
  - ARTHRALGIA [None]
  - HYPERSENSITIVITY [None]
  - JOINT STIFFNESS [None]
  - LIP SWELLING [None]
  - OEDEMA MOUTH [None]
  - OROPHARYNGEAL PAIN [None]
  - PAIN [None]
  - PRODUCT QUALITY ISSUE [None]
  - SINUSITIS [None]
  - VIRAL INFECTION [None]
